FAERS Safety Report 14202436 (Version 3)
Quarter: 2018Q3

REPORT INFORMATION
  Report Type: Spontaneous
  Country: DE (occurrence: DE)
  Receive Date: 20171117
  Receipt Date: 20180801
  Transmission Date: 20181010
  Serious: Yes (Death, Other)
  Sender: FDA-Public Use
  Company Number: PHHY2017DE169851

PATIENT
  Age: 62 Year
  Sex: Male
  Weight: 62 kg

DRUGS (5)
  1. EVEROLIMUS. [Suspect]
     Active Substance: EVEROLIMUS
     Indication: LIVER TRANSPLANT
     Dosage: UNK
     Route: 065
     Dates: start: 2011, end: 201307
  2. NEXAVAR [Concomitant]
     Active Substance: SORAFENIB
     Indication: HEPATOCELLULAR CARCINOMA
     Dosage: 400 MG, QD
     Route: 048
     Dates: start: 201010, end: 201307
  3. PROGRAF [Concomitant]
     Active Substance: TACROLIMUS\TACROLIMUS ANHYDROUS
     Indication: PRODUCT USED FOR UNKNOWN INDICATION
     Dosage: UNK
     Route: 065
     Dates: start: 201307, end: 201503
  4. EVEROLIMUS. [Suspect]
     Active Substance: EVEROLIMUS
     Indication: PROPHYLAXIS AGAINST TRANSPLANT REJECTION
  5. SORAFENIB [Concomitant]
     Active Substance: SORAFENIB
     Indication: PRODUCT USE IN UNAPPROVED INDICATION
     Route: 065

REACTIONS (5)
  - Metastases to lung [Unknown]
  - Hepatocellular carcinoma [Unknown]
  - Death [Fatal]
  - Renal impairment [Unknown]
  - Contraindicated product administered [Unknown]

NARRATIVE: CASE EVENT DATE: 201306
